FAERS Safety Report 4303478-7 (Version None)
Quarter: 2004Q1

REPORT INFORMATION
  Report Type: 
  Country: None (occurrence: None)
  Receive Date: 20040223
  Receipt Date: 20040209
  Transmission Date: 20041129
  Serious: Yes (Other)
  Sender: FDA-Public Use
  Company Number: 2004008312

PATIENT
  Age: 39 Year
  Sex: Male
  Weight: 45.3597 kg

DRUGS (4)
  1. ZOLOFT [Suspect]
     Indication: DEPRESSION
     Dosage: (DAILY), ORAL
     Route: 048
     Dates: start: 19930101
  2. VALPROATE SODIUM [Suspect]
     Indication: EPILEPSY
     Dosage: 1000 MG (BID), ORAL
     Route: 048
  3. OMEPRAZOLE [Concomitant]
  4. LORAZEPAM [Concomitant]

REACTIONS (5)
  - EPILEPSY [None]
  - FEELING ABNORMAL [None]
  - LETHARGY [None]
  - SOMNOLENCE [None]
  - THERAPEUTIC PRODUCT INEFFECTIVE [None]
